FAERS Safety Report 4445609-4 (Version None)
Quarter: 2004Q3

REPORT INFORMATION
  Report Type: 
  Country: None (occurrence: None)
  Receive Date: 20040802
  Receipt Date: 20040519
  Transmission Date: 20050211
  Serious: No
  Sender: FDA-Public Use
  Company Number: 2004-116780-NL

PATIENT
  Age: 30 Year
  Sex: Female
  Weight: 65.9 kg

DRUGS (5)
  1. NUVARING [Suspect]
     Indication: CONTRACEPTION
     Dosage: DF DAILY, VAGINAL
     Route: 067
     Dates: start: 20040515
  2. VITAMIN [Concomitant]
  3. ASPIRIN [Concomitant]
  4. IBUPROFEN [Concomitant]
  5. PSEUDOEPHEDRINE HCL [Concomitant]

REACTIONS (1)
  - VULVAL DISORDER [None]
